FAERS Safety Report 16445223 (Version 1)
Quarter: 2019Q2

REPORT INFORMATION
  Report Type: Spontaneous
  Country: US (occurrence: US)
  Receive Date: 20190618
  Receipt Date: 20190618
  Transmission Date: 20190711
  Serious: No
  Sender: FDA-Public Use
  Company Number: US-TEVA-2019-US-1061350

PATIENT
  Age: 64 Year
  Sex: Female

DRUGS (4)
  1. LIDOCAINE. [Suspect]
     Active Substance: LIDOCAINE
     Indication: ARTHRALGIA
  2. LIDOCAINE. [Suspect]
     Active Substance: LIDOCAINE
     Indication: NEURALGIA
     Route: 061
  3. CAPSAICIN. [Suspect]
     Active Substance: CAPSAICIN
     Indication: ARTHRALGIA
  4. CAPSAICIN. [Suspect]
     Active Substance: CAPSAICIN
     Indication: NEURALGIA
     Route: 061

REACTIONS (1)
  - Treatment failure [Unknown]
